FAERS Safety Report 14985251 (Version 4)
Quarter: 2018Q4

REPORT INFORMATION
  Report Type: Spontaneous
  Country: GB (occurrence: GB)
  Receive Date: 20180607
  Receipt Date: 20181226
  Transmission Date: 20190204
  Serious: Yes (Death, Other)
  Sender: FDA-Public Use
  Company Number: GB-NAPPMUNDI-GBR-2018-0056581

PATIENT
  Age: 36 Year
  Sex: Male

DRUGS (6)
  1. OXYCODONE HYDROCHLORIDE. [Suspect]
     Active Substance: OXYCODONE HYDROCHLORIDE
     Indication: PAIN
  2. OXYCODONE HYDROCHLORIDE. [Suspect]
     Active Substance: OXYCODONE HYDROCHLORIDE
     Indication: POST-TRAUMATIC PAIN
     Dosage: UNK
     Route: 065
     Dates: start: 201701
  3. ZOPICLONE [Suspect]
     Active Substance: ZOPICLONE
     Indication: PRODUCT USED FOR UNKNOWN INDICATION
     Dosage: UNK
     Route: 065
  4. TRAMADOL HYDROCHLORIDE. [Suspect]
     Active Substance: TRAMADOL HYDROCHLORIDE
     Indication: PAIN
  5. ALCOHOL. [Suspect]
     Active Substance: ALCOHOL
     Indication: PRODUCT USED FOR UNKNOWN INDICATION
     Dosage: UNK
     Route: 065
  6. TRAMADOL HYDROCHLORIDE. [Suspect]
     Active Substance: TRAMADOL HYDROCHLORIDE
     Indication: POST-TRAUMATIC PAIN
     Dosage: UNK
     Route: 065

REACTIONS (5)
  - Overdose [Fatal]
  - Toxicity to various agents [Fatal]
  - Prescribed overdose [Fatal]
  - Epistaxis [Fatal]
  - Loss of consciousness [Fatal]

NARRATIVE: CASE EVENT DATE: 201709
